FAERS Safety Report 4488813-1 (Version None)
Quarter: 2004Q4

REPORT INFORMATION
  Report Type: 
  Country: None (occurrence: None)
  Receive Date: 20041029
  Receipt Date: 20030605
  Transmission Date: 20050328
  Serious: Yes (Disabling, Other)
  Sender: FDA-Public Use
  Company Number: US-MERCK-0306USA00758

PATIENT
  Age: 57 Year
  Sex: Female
  Weight: 128 kg

DRUGS (5)
  1. VIOXX [Suspect]
     Indication: NECK PAIN
     Route: 048
  2. VIOXX [Suspect]
     Route: 048
  3. VIOXX [Suspect]
     Indication: BACK PAIN
     Route: 048
  4. VIOXX [Suspect]
     Route: 048
  5. DARVOCET-N 100 [Concomitant]
     Indication: NECK PAIN
     Route: 065

REACTIONS (9)
  - ADVERSE EVENT [None]
  - ANGINA PECTORIS [None]
  - ARTHRALGIA [None]
  - BACK DISORDER [None]
  - BLOOD PRESSURE INCREASED [None]
  - CONVULSION [None]
  - DRUG INEFFECTIVE [None]
  - NECK INJURY [None]
  - SOMNOLENCE [None]
